FAERS Safety Report 8983945 (Version 2)
Quarter: 2013Q2

REPORT INFORMATION
  Report Type: Spontaneous
  Country: US (occurrence: None)
  Receive Date: 20120508
  Receipt Date: 20121107
  Transmission Date: 20140414
  Serious: Yes (Other)
  Sender: FDA-Public Use
  Company Number: 2012HGS-003296

PATIENT
  Age: 67 Year
  Sex: Female
  Weight: 79.83 kg

DRUGS (15)
  1. BENLYSTA [Suspect]
     Indication: SYSTEMIC LUPUS ERYTHEMATOSUS
     Dates: start: 20110915
  2. METHOTREXATE (METHOTREXATE) [Concomitant]
  3. AMBIEN (ZOLPIDEM TARTRATE) [Concomitant]
  4. PAMINE (HYOSCINE METHOBROMIDE) [Concomitant]
  5. COMBIGAN (COMBIGAN) (TIMOLOL MALEATE, BRIMONIDINE TARTRATE) [Concomitant]
  6. DIOVAN (VALSARTAN) [Concomitant]
  7. AMLODIPINE BESILATE (AMLODIPINE BESILATE) [Concomitant]
  8. TOPROL (METOPROLOL SUCCINATE) [Concomitant]
  9. ANTIVERT (ANCOVERT) (NICOTINIC ACID, MECLOZINE HYDROCHLORIDE) [Concomitant]
  10. SYNTHROID (LEVOTHYROXINE SODIUM) [Concomitant]
  11. ZOLOFT (SERTRALINE HYDROCHLORIDE) [Concomitant]
  12. DEXILANT (DEXLANSOPRAZOLE) [Concomitant]
  13. PROBIOTICS (PROBIOTIC NOS) [Concomitant]
  14. PREDNISONE (PREDNISONE) [Concomitant]
  15. FOLIC ACID (FOLIC ACID) [Concomitant]

REACTIONS (7)
  - Thinking abnormal [None]
  - Memory impairment [None]
  - Urinary tract infection [None]
  - Memory impairment [None]
  - Haemorrhage urinary tract [None]
  - Dysuria [None]
  - Bladder discomfort [None]
